FAERS Safety Report 8567539-9 (Version None)
Quarter: 2012Q3

REPORT INFORMATION
  Report Type: 
  Country: None (occurrence: None)
  Receive Date: 20120803
  Receipt Date: 20120802
  Transmission Date: 20120928
  Serious: Yes (Death)
  Sender: FDA-Public Use
  Company Number: PHEH2012US015135

PATIENT
  Sex: Male

DRUGS (4)
  1. ZOLADEX [Concomitant]
  2. ZOMETA [Suspect]
  3. CASODEX [Concomitant]
  4. RADIOTHERAPY [Concomitant]

REACTIONS (1)
  - DEATH [None]
